FAERS Safety Report 22598733 (Version 2)
Quarter: 2023Q2

REPORT INFORMATION
  Report Type: Spontaneous
  Country: US (occurrence: US)
  Receive Date: 20230614
  Receipt Date: 20230622
  Transmission Date: 20230721
  Serious: Yes (Other)
  Sender: FDA-Public Use
  Company Number: US-CIPLA LTD-2023US03114

PATIENT

DRUGS (2)
  1. ALBUTEROL [Suspect]
     Active Substance: ALBUTEROL
     Indication: Asthma
     Dosage: 90 MCG (1 PUFF), EVERY 6 TO 8 HOURS (1ST INHALER)
     Dates: start: 2022
  2. ALBUTEROL [Suspect]
     Active Substance: ALBUTEROL
     Dosage: 90 MCG (1 PUFF), EVERY 6 TO 8 HOURS (2ND INHALER)
     Dates: start: 2023

REACTIONS (6)
  - Choking [Recovered/Resolved]
  - Dyspnoea [Recovered/Resolved]
  - Product delivery mechanism issue [Unknown]
  - Incorrect dose administered [Unknown]
  - Drug ineffective [Unknown]
  - Product cleaning inadequate [Unknown]

NARRATIVE: CASE EVENT DATE: 20230501
